FAERS Safety Report 5394611-7 (Version None)
Quarter: 2007Q3

REPORT INFORMATION
  Report Type: 
  Country: None (occurrence: None)
  Receive Date: 20070720
  Receipt Date: 20070709
  Transmission Date: 20080115
  Serious: Yes (Hospitalization)
  Sender: FDA-Public Use
  Company Number: GXKR2007US05915

PATIENT
  Age: 45 Year
  Sex: Female

DRUGS (1)
  1. HYDROXYZINE [Suspect]
     Indication: PRURITUS
     Dosage: 25 MG, INTRAMUSCULAR
     Route: 030

REACTIONS (13)
  - CELLULITIS [None]
  - EMBOLIA CUTIS MEDICAMENTOSA [None]
  - FAT NECROSIS [None]
  - GAIT DISTURBANCE [None]
  - INJECTION SITE OEDEMA [None]
  - INJECTION SITE PAIN [None]
  - MUSCLE HAEMORRHAGE [None]
  - MUSCLE NECROSIS [None]
  - MYOSITIS [None]
  - PAIN IN EXTREMITY [None]
  - SKIN GRAFT [None]
  - SKIN NECROSIS [None]
  - WOUND INFECTION STAPHYLOCOCCAL [None]
